FAERS Safety Report 13666382 (Version 1)
Quarter: 2017Q2

REPORT INFORMATION
  Report Type: Spontaneous
  Country: US (occurrence: US)
  Receive Date: 20170619
  Receipt Date: 20170619
  Transmission Date: 20170830
  Serious: No
  Sender: FDA-Public Use
  Company Number: US-ROCHE-1407503

PATIENT
  Sex: Female

DRUGS (10)
  1. JANUMET [Concomitant]
     Active Substance: METFORMIN HYDROCHLORIDE\SITAGLIPTIN PHOSPHATE
  2. GLIPIZIDE. [Concomitant]
     Active Substance: GLIPIZIDE
  3. LISINOPRIL. [Concomitant]
     Active Substance: LISINOPRIL
  4. LEVOTHYROXINE. [Concomitant]
     Active Substance: LEVOTHYROXINE
  5. XELODA [Suspect]
     Active Substance: CAPECITABINE
     Indication: COLON CANCER
     Route: 048
     Dates: start: 20140408
  6. LORAZEPAM. [Concomitant]
     Active Substance: LORAZEPAM
  7. PRAVASTATIN. [Concomitant]
     Active Substance: PRAVASTATIN
  8. ACETAMINOPHEN. [Concomitant]
     Active Substance: ACETAMINOPHEN
  9. VICTOZA [Concomitant]
     Active Substance: LIRAGLUTIDE
  10. FAMOTIDINE. [Concomitant]
     Active Substance: FAMOTIDINE

REACTIONS (4)
  - Asthenia [Unknown]
  - Fatigue [Unknown]
  - Decreased appetite [Unknown]
  - Alopecia [Unknown]
